FAERS Safety Report 24446960 (Version 1)
Quarter: 2024Q4

REPORT INFORMATION
  Report Type: Spontaneous
  Country: US (occurrence: US)
  Receive Date: 20241016
  Receipt Date: 20241016
  Transmission Date: 20250114
  Serious: No
  Sender: NOVO NORDISK
  Company Number: US-NOVOPROD-1264431

PATIENT
  Sex: Male

DRUGS (1)
  1. SOGROYA [Suspect]
     Active Substance: SOMAPACITAN\SOMAPACITAN-BECO
     Indication: Product used for unknown indication
     Dosage: 6 MG, QW
     Route: 058
     Dates: start: 202401

REACTIONS (3)
  - Fatigue [Recovered/Resolved]
  - Arthralgia [Recovered/Resolved]
  - Headache [Recovered/Resolved]
